FAERS Safety Report 14855008 (Version 1)
Quarter: 2018Q2

REPORT INFORMATION
  Report Type: Spontaneous
  Country: US (occurrence: US)
  Receive Date: 20180507
  Receipt Date: 20180507
  Transmission Date: 20180711
  Serious: No
  Sender: FDA-Public Use
  Company Number: US-ROCHE-1917864

PATIENT
  Sex: Male

DRUGS (7)
  1. ESBRIET [Suspect]
     Active Substance: PIRFENIDONE
     Dosage: TAKE 3 CAPSULE BY MOUTH 3 TIMES A DAY
     Route: 048
  2. TAMSULOSIN [Concomitant]
     Active Substance: TAMSULOSIN
     Route: 065
  3. DOXYCYCLINE. [Concomitant]
     Active Substance: DOXYCYCLINE
  4. ESBRIET [Suspect]
     Active Substance: PIRFENIDONE
     Indication: SLEEP APNOEA SYNDROME
     Route: 048
     Dates: start: 20170324
  5. PREDNISONE. [Concomitant]
     Active Substance: PREDNISONE
  6. ESBRIET [Suspect]
     Active Substance: PIRFENIDONE
     Indication: IDIOPATHIC PULMONARY FIBROSIS
     Route: 048
     Dates: start: 20170402
  7. ASPIR 81 [Concomitant]

REACTIONS (4)
  - Dyspepsia [Not Recovered/Not Resolved]
  - Off label use [Unknown]
  - Sluggishness [Not Recovered/Not Resolved]
  - Intentional product use issue [Unknown]
